FAERS Safety Report 19717831 (Version 2)
Quarter: 2021Q4

REPORT INFORMATION
  Report Type: Report from Study
  Country: US (occurrence: US)
  Receive Date: 20210819
  Receipt Date: 20211204
  Transmission Date: 20220303
  Serious: Yes (Hospitalization)
  Sender: FDA-Public Use
  Company Number: US-NOVARTISPH-NVSC2021US180329

PATIENT
  Sex: Female

DRUGS (1)
  1. KESIMPTA [Suspect]
     Active Substance: OFATUMUMAB
     Indication: Multiple sclerosis
     Dosage: 20 MG, UNKNOWN
     Route: 058
     Dates: start: 20210718

REACTIONS (4)
  - Dehydration [Unknown]
  - Urinary tract infection [Unknown]
  - Asthenia [Unknown]
  - Syncope [Unknown]
